FAERS Safety Report 25653642 (Version 1)
Quarter: 2025Q3

REPORT INFORMATION
  Report Type: Report from Study
  Country: US (occurrence: US)
  Receive Date: 20250807
  Receipt Date: 20250807
  Transmission Date: 20251020
  Serious: No
  Sender: SUNOVION
  Company Number: US-SUMITOMO PHARMA SWITZERLAND GMBH-2025SPA001197

PATIENT
  Age: 78 Year
  Sex: Male

DRUGS (9)
  1. ORGOVYX [Suspect]
     Active Substance: RELUGOLIX
     Indication: Prostate cancer
     Dosage: 120 MG, QD
     Route: 048
     Dates: start: 202501
  2. AMLODIPINE [Concomitant]
     Active Substance: AMLODIPINE BESYLATE
  3. BACTRIM DS [Concomitant]
     Active Substance: SULFAMETHOXAZOLE\TRIMETHOPRIM
  4. BENAZEPRIL [Concomitant]
     Active Substance: BENAZEPRIL HYDROCHLORIDE
  5. SILDENAFIL [Concomitant]
     Active Substance: SILDENAFIL
  6. Gas-x max strength [Concomitant]
  7. IMODIUM A-D [Concomitant]
     Active Substance: LOPERAMIDE HYDROCHLORIDE
  8. MILK OF MAGNESIA [Concomitant]
     Active Substance: MAGNESIUM HYDROXIDE
  9. TAMSULOSIN [Concomitant]
     Active Substance: TAMSULOSIN

REACTIONS (6)
  - Dysuria [Unknown]
  - Fatigue [Unknown]
  - Pain in extremity [Not Recovered/Not Resolved]
  - Hot flush [Unknown]
  - Product dose omission issue [Unknown]
  - Incorrect dose administered [Unknown]
